FAERS Safety Report 9309761 (Version 1)
Quarter: 2013Q2

REPORT INFORMATION
  Report Type: Spontaneous
  Country: US (occurrence: US)
  Receive Date: 20130525
  Receipt Date: 20130525
  Transmission Date: 20140414
  Serious: No
  Sender: FDA-Public Use
  Company Number: US-BRISTOL-MYERS SQUIBB COMPANY-18587170

PATIENT
  Sex: Male

DRUGS (1)
  1. BYDUREON 2MG VIAL + SYRINGE [Suspect]
     Route: 058

REACTIONS (3)
  - Palpitations [Recovered/Resolved]
  - Sinus congestion [Recovered/Resolved]
  - Feeling abnormal [Recovered/Resolved]
